FAERS Safety Report 10246436 (Version 2)
Quarter: 2014Q3

REPORT INFORMATION
  Report Type: Spontaneous
  Country: SE (occurrence: SE)
  Receive Date: 20140619
  Receipt Date: 20140723
  Transmission Date: 20150326
  Serious: Yes (Other)
  Sender: FDA-Public Use
  Company Number: SE-JNJFOC-20140612530

PATIENT
  Age: 54 Year
  Sex: Female

DRUGS (1)
  1. SIMPONI [Suspect]
     Active Substance: GOLIMUMAB
     Indication: CROHN^S DISEASE
     Route: 058

REACTIONS (9)
  - Glossodynia [Unknown]
  - Dry mouth [Unknown]
  - Mood swings [Unknown]
  - Nausea [Unknown]
  - Headache [Unknown]
  - Nasal discomfort [Unknown]
  - Tongue discolouration [Unknown]
  - Dizziness [Unknown]
  - Ageusia [Unknown]
